FAERS Safety Report 19777757 (Version 1)
Quarter: 2021Q3

REPORT INFORMATION
  Report Type: Spontaneous
  Country: ES (occurrence: ES)
  Receive Date: 20210902
  Receipt Date: 20210902
  Transmission Date: 20211014
  Serious: Yes (Hospitalization)
  Sender: FDA-Public Use
  Company Number: ES-ROCHE-2899017

PATIENT
  Age: 74 Year
  Sex: Female

DRUGS (1)
  1. XELODA [Suspect]
     Active Substance: CAPECITABINE
     Indication: COLORECTAL ADENOCARCINOMA
     Dosage: FOR 14 DAYS
     Route: 048
     Dates: start: 20210609, end: 20210627

REACTIONS (6)
  - Palmar-plantar erythrodysaesthesia syndrome [Recovered/Resolved]
  - Anaemia [Recovered/Resolved]
  - Malnutrition [Recovered/Resolved]
  - Mucosal inflammation [Recovered/Resolved]
  - Vomiting [Recovered/Resolved]
  - Neutropenic sepsis [Recovered/Resolved]

NARRATIVE: CASE EVENT DATE: 20210621
